FAERS Safety Report 4488186-4 (Version None)
Quarter: 2004Q4

REPORT INFORMATION
  Report Type: 
  Country: None (occurrence: None)
  Receive Date: 20041025
  Receipt Date: 20041013
  Transmission Date: 20050328
  Serious: Yes (Life-Threatening)
  Sender: FDA-Public Use
  Company Number: 2003144815GB

PATIENT
  Age: 56 Year
  Sex: Male
  Weight: 79.8 kg

DRUGS (5)
  1. GENOTROPIN [Suspect]
     Indication: HYPOPITUITARISM
     Dosage: 0.4 MG, QD, SUBCUTANEOUS
     Route: 058
     Dates: start: 19971204, end: 20020625
  2. THYROXIN (LEVOTHYROXINE SODIUM) [Concomitant]
  3. TESTOSTERONE [Concomitant]
  4. ATENOLOL [Concomitant]
  5. CITALOPRAM HYDROBROMIDE [Concomitant]

REACTIONS (3)
  - CIRCULATORY COLLAPSE [None]
  - NEOPLASM RECURRENCE [None]
  - SARCOMA [None]
